FAERS Safety Report 5097817-X (Version None)
Quarter: 2006Q3

REPORT INFORMATION
  Report Type: 
  Country: None (occurrence: None)
  Receive Date: 20060731
  Receipt Date: 20060327
  Transmission Date: 20061208
  Serious: Yes (Other)
  Sender: FDA-Public Use
  Company Number: 223500

PATIENT
  Age: 49 Year
  Sex: Female

DRUGS (1)
  1. HERCEPTIN [Suspect]
     Indication: BREAST CANCER
     Dosage: Q3W
     Dates: start: 20051201

REACTIONS (2)
  - EJECTION FRACTION DECREASED [None]
  - EPISTAXIS [None]
